FAERS Safety Report 15089910 (Version 1)
Quarter: 2018Q2

REPORT INFORMATION
  Report Type: Spontaneous
  Country: US (occurrence: US)
  Receive Date: 20180608
  Receipt Date: 20180608
  Transmission Date: 20180711
  Serious: Yes (Death)
  Sender: FDA-Public Use
  Company Number: None

PATIENT
  Age: 50 Year
  Sex: Female
  Weight: 122 kg

DRUGS (1)
  1. TRABECTEDIN [Suspect]
     Active Substance: TRABECTEDIN
     Indication: SARCOMA
     Route: 042
     Dates: start: 20180321, end: 20180508

REACTIONS (5)
  - Acute kidney injury [None]
  - Thrombocytopenia [None]
  - Neutropenia [None]
  - Dyspnoea [None]
  - Acute respiratory failure [None]

NARRATIVE: CASE EVENT DATE: 20180510
